FAERS Safety Report 11267707 (Version 1)
Quarter: 2015Q3

REPORT INFORMATION
  Report Type: Spontaneous
  Country: US (occurrence: US)
  Receive Date: 20150713
  Receipt Date: 20150713
  Transmission Date: 20151125
  Serious: No
  Sender: FDA-Public Use
  Company Number: US-TAKEDA-2013MPI000789

PATIENT
  Age: 51 Year
  Sex: Female
  Weight: 100 kg

DRUGS (8)
  1. NORCO [Concomitant]
     Active Substance: ACETAMINOPHEN\HYDROCODONE BITARTRATE
  2. VELCADE [Suspect]
     Active Substance: BORTEZOMIB
     Indication: PLASMA CELL MYELOMA
     Dosage: 2.8 MG, ON DAYS 1, 4, 8 AND 11
     Route: 058
     Dates: start: 20130806
  3. DOXIL [Suspect]
     Active Substance: DOXORUBICIN HYDROCHLORIDE
     Indication: PLASMA CELL MYELOMA
     Dosage: 65 MG, ON DAY 1
     Route: 040
     Dates: start: 20130806
  4. GLUCOTROL [Concomitant]
     Active Substance: GLIPIZIDE
     Indication: BLOOD GLUCOSE INCREASED
  5. DEXAMETHASONE. [Suspect]
     Active Substance: DEXAMETHASONE
     Indication: PLASMA CELL MYELOMA
     Dosage: 40 MG, 1/WEEK
  6. NORMAL SALINE [Concomitant]
     Active Substance: SODIUM CHLORIDE
     Dosage: 25 ML, UNK
     Route: 042
  7. DEXTROSE IN WATER [Concomitant]
     Dosage: 250 ML, UNK
     Route: 042
  8. ZOMETA [Suspect]
     Active Substance: ZOLEDRONIC ACID
     Indication: PLASMA CELL MYELOMA
     Dosage: 4 MG, UNK
     Route: 040
     Dates: start: 20130806

REACTIONS (6)
  - Dysgeusia [Unknown]
  - Injection site erythema [Unknown]
  - Abdominal discomfort [Unknown]
  - Wheezing [Unknown]
  - Blood glucose increased [Unknown]
  - Dry skin [Unknown]

NARRATIVE: CASE EVENT DATE: 201308
